FAERS Safety Report 7655118-7 (Version None)
Quarter: 2011Q3

REPORT INFORMATION
  Report Type: 
  Country: None (occurrence: None)
  Receive Date: 20110804
  Receipt Date: 20090901
  Transmission Date: 20111222
  Serious: Yes (Death, Other)
  Sender: FDA-Public Use
  Company Number: US-BAYER-US-2007-006372

PATIENT
  Age: 64 Year
  Sex: Male
  Weight: 95 kg

DRUGS (51)
  1. IOPAMIDOL [Concomitant]
     Dosage: 30 ML, 1 DOSE
     Dates: start: 20070330, end: 20070330
  2. NORVASC [Concomitant]
     Dosage: 5 MG, 1X/DAY
  3. INSULIN ASPART [Concomitant]
  4. SENNA [SENNA ALEXANDRINA] [Concomitant]
  5. EPOETIN ALFA [Concomitant]
     Dosage: 30000UNITS X 6 WEEKS
     Route: 058
  6. ACETYLSALICYLIC ACID SRT [Concomitant]
  7. CALCITRIOL [Concomitant]
  8. FUROSEMIDE [Concomitant]
  9. POTASSIUM CHLORIDE [Concomitant]
     Dosage: UNK
  10. NOREPINEPHRINE BITARTRATE [Concomitant]
  11. RENAGEL [Concomitant]
  12. OPTIMARK [Suspect]
  13. PERFLUTREN [Concomitant]
     Indication: ECHOCARDIOGRAM
     Dosage: 2 ML, 1 DOSE
     Dates: start: 20060309, end: 20060309
  14. PROTONIX [Concomitant]
     Dosage: 40 MG, 2X/DAY
     Route: 048
  15. METOPROLOL TARTRATE [Concomitant]
     Dosage: 25 MG, 2X/DAY
  16. CALCIUM ACETATE [Concomitant]
     Dosage: 667 MG, 3X/DAY
  17. DARBEPOETIN ALFA [Concomitant]
     Dosage: 100 ?G, UNK
  18. FERRLECIT [SODIUM FERRIGLUCONATE] [Concomitant]
     Dosage: UNK, UNK
     Dates: start: 20051203
  19. COUMADIN [Concomitant]
  20. DEXAMETHASONE [Concomitant]
  21. MAGNEVIST [Suspect]
     Indication: ANGIOGRAM
     Dosage: 40 ML, ONCE
     Dates: start: 19990712, end: 19990712
  22. OMNISCAN [Suspect]
  23. DEXTROPROPOXYPHENE NAPSILATE W/PARACETAMOL [Concomitant]
     Indication: PAIN
     Dosage: 1 TAB(S), AS REQ'D [DAILY DOSE: 1 TAB(S)]
     Route: 048
  24. ERGOCALCIFEROL [Concomitant]
     Indication: HYPOPARATHYROIDISM
     Dosage: 50000 UNITS
     Route: 048
     Dates: start: 20070331, end: 20070402
  25. ACETAMINOPHEN [Concomitant]
  26. MAGNEVIST [Suspect]
  27. DOBUTAMINE HCL [Concomitant]
     Indication: CARDIAC STRESS TEST
     Dosage: UNK, 1 DOSE
     Dates: start: 20050101, end: 20050101
  28. LIPITOR [Concomitant]
     Dosage: 20 MG, 1X/DAY
  29. NEPHROCAPS [Concomitant]
     Dosage: 1 CAP(S), 1X/DAY [DAILY DOSE: 1 CAP(S)]
  30. NADOLOL [Concomitant]
     Dosage: 10 MG, 2X/DAY
  31. COUMADIN [Concomitant]
     Dosage: 2.5 MG, 1X/DAY
     Dates: start: 20070404
  32. EPOETIN ALFA [Concomitant]
     Dosage: 20000 UNITS
     Route: 058
  33. ZOLPIDEM TARTRATE [Concomitant]
     Dosage: UNK, UNK
     Dates: start: 20070328
  34. COVERA-HS [Concomitant]
  35. CONTRAST MEDIA [Suspect]
  36. DOCUSATE SODIUM [Concomitant]
     Dosage: 100 MG, 3X/DAY
  37. LISINOPRIL [Concomitant]
     Dosage: 10 MG, 1X/DAY
  38. IOPROMIDE [Concomitant]
     Indication: FISTULOGRAM
     Dosage: UNK, 1 DOSE
     Dates: start: 20070328, end: 20070328
  39. ALUMINUM HYDROXIDE AND MAGNESIUM TRISILICATE [Concomitant]
     Dosage: UNK, UNK
     Dates: start: 20070327
  40. PHOSLO [Concomitant]
  41. MULTIHANCE [Suspect]
  42. ISOPHANE INSULIN [Concomitant]
     Dosage: SLIDING SCALE
  43. ZAROXOLYN [Concomitant]
  44. MAGNEVIST [Suspect]
     Indication: AORTOGRAM
     Dosage: UNK, 1 DOSE
     Route: 042
     Dates: start: 20050204, end: 20050204
  45. IOPAMIDOL [Concomitant]
     Indication: FISTULOGRAM
     Dosage: UNK, 1 DOSE
     Dates: start: 20070328, end: 20070328
  46. FOLIC ACID [Concomitant]
     Dosage: 1 MG, 1X/DAY
  47. INSULIN [Concomitant]
     Dosage: SLIDING SCALE
  48. MAGNESIUM OXIDE [Concomitant]
     Dosage: 400 MG, 1X/DAY
  49. FERROUS SULFATE TAB [Concomitant]
  50. EPOGEN [Concomitant]
  51. PHYTONADIONE [Concomitant]

REACTIONS (16)
  - NEPHROGENIC SYSTEMIC FIBROSIS [None]
  - OEDEMA PERIPHERAL [None]
  - EMOTIONAL DISTRESS [None]
  - PAIN [None]
  - MOBILITY DECREASED [None]
  - GAIT DISTURBANCE [None]
  - SKIN HYPERPIGMENTATION [None]
  - HYPOAESTHESIA [None]
  - PEAU D'ORANGE [None]
  - ANXIETY [None]
  - SKIN HYPERTROPHY [None]
  - MUSCULOSKELETAL STIFFNESS [None]
  - JOINT CONTRACTURE [None]
  - ANHEDONIA [None]
  - SKIN TIGHTNESS [None]
  - CHRONIC HEPATIC FAILURE [None]
